FAERS Safety Report 21300662 (Version 1)
Quarter: 2022Q3

REPORT INFORMATION
  Report Type: Spontaneous
  Country: US (occurrence: US)
  Receive Date: 20220907
  Receipt Date: 20220907
  Transmission Date: 20221027
  Serious: Yes (Other)
  Sender: FDA-Public Use
  Company Number: US-SUN PHARMACEUTICAL INDUSTRIES LTD-2022R1-353576

PATIENT
  Age: 84 Year
  Sex: Female

DRUGS (3)
  1. DIGOXIN [Interacting]
     Active Substance: DIGOXIN
     Indication: Atrial fibrillation
     Dosage: UNK
     Route: 065
  2. AMIODARONE [Interacting]
     Active Substance: AMIODARONE
     Indication: Atrial fibrillation
     Dosage: UNK
     Route: 065
  3. LASIX [Interacting]
     Active Substance: FUROSEMIDE
     Indication: Atrial fibrillation
     Dosage: UNK
     Route: 065

REACTIONS (12)
  - Confusional state [Recovering/Resolving]
  - Abdominal pain [Recovering/Resolving]
  - Vomiting [Recovering/Resolving]
  - Fluid intake reduced [Recovering/Resolving]
  - Dehydration [Recovering/Resolving]
  - Bradycardia [Recovering/Resolving]
  - Electrocardiogram PR prolongation [Recovering/Resolving]
  - Electrocardiogram ST segment depression [Recovering/Resolving]
  - Drug interaction [Unknown]
  - Hyperkalaemia [Recovering/Resolving]
  - Acute kidney injury [Recovering/Resolving]
  - Toxicity to various agents [Unknown]
